FAERS Safety Report 6196865-6 (Version None)
Quarter: 2009Q2

REPORT INFORMATION
  Report Type: 
  Country: None (occurrence: None)
  Receive Date: 20090518
  Receipt Date: 20090518
  Transmission Date: 20091009
  Serious: Yes (Other)
  Sender: FDA-Public Use
  Company Number: None

PATIENT
  Age: 72 Year
  Sex: Female
  Weight: 81.6475 kg

DRUGS (1)
  1. FENTANYL-100 [Suspect]
     Indication: ARTHRITIS
     Dosage: 25 MCG 1 PATCH EVERY72HRS
     Dates: start: 20090516, end: 20090516

REACTIONS (8)
  - ANOREXIA [None]
  - ASTHENIA [None]
  - DIZZINESS [None]
  - DRY MOUTH [None]
  - DYSSTASIA [None]
  - HEADACHE [None]
  - NAUSEA [None]
  - RESPIRATORY DISORDER [None]
